FAERS Safety Report 12635537 (Version 1)
Quarter: 2016Q3

REPORT INFORMATION
  Report Type: Report from Study
  Country: US (occurrence: US)
  Receive Date: 20160809
  Receipt Date: 20160809
  Transmission Date: 20161109
  Serious: Yes (Hospitalization)
  Sender: FDA-Public Use
  Company Number: US-SEBELA IRELAND LIMITED-2016SEB00301

PATIENT
  Age: 56 Year
  Sex: Female

DRUGS (16)
  1. IRON [Concomitant]
     Active Substance: IRON
  2. HUMIRA [Suspect]
     Active Substance: ADALIMUMAB
     Indication: CROHN^S DISEASE
     Dosage: 40 MG, 1 IN 2 WK
     Route: 058
     Dates: start: 201512, end: 201512
  3. CALCIUM [Concomitant]
     Active Substance: CALCIUM
  4. VITMAIN B12 [Concomitant]
  5. BUDESONIDE. [Concomitant]
     Active Substance: BUDESONIDE
     Dosage: UNK
  6. OMEPRAZOLE. [Concomitant]
     Active Substance: OMEPRAZOLE
     Dosage: UNK
  7. VITAMIN C [Concomitant]
     Active Substance: ASCORBIC ACID
  8. VITAMIN D [Concomitant]
     Active Substance: CHOLECALCIFEROL
  9. VITAMIN B12 [Concomitant]
     Active Substance: CYANOCOBALAMIN
     Dosage: UNK
  10. MULTI-VITAMIN [Concomitant]
     Active Substance: .ALPHA.-TOCOPHEROL ACETATE, DL-\ASCORBIC ACID\CYANOCOBALAMIN\FLUORIDE ION\FOLIC ACID\NIACIN\PYRIDOXINE\RIBOFLAVIN\THIAMINE\VITAMIN A\VITAMIN D
     Dosage: UNK
  11. IMURAN [Suspect]
     Active Substance: AZATHIOPRINE
     Indication: CROHN^S DISEASE
     Dosage: UNK
     Dates: start: 20160330, end: 20160330
  12. PENTASA [Concomitant]
     Active Substance: MESALAMINE
  13. SUMATRIPTAN. [Concomitant]
     Active Substance: SUMATRIPTAN
     Dosage: UNK
  14. ZOFRAN [Concomitant]
     Active Substance: ONDANSETRON HYDROCHLORIDE
     Dosage: UNK
  15. HUMIRA [Suspect]
     Active Substance: ADALIMUMAB
     Dosage: 40 MG, 1 IN 1WK
     Route: 058
     Dates: start: 201512
  16. FOLIC ACID. [Concomitant]
     Active Substance: FOLIC ACID
     Dosage: UNK

REACTIONS (3)
  - Abdominal pain [Recovering/Resolving]
  - Gastrointestinal inflammation [Recovering/Resolving]
  - Large intestinal obstruction [Recovered/Resolved]

NARRATIVE: CASE EVENT DATE: 20160331
